FAERS Safety Report 6962198-0 (Version None)
Quarter: 2010Q3

REPORT INFORMATION
  Report Type: 
  Country: None (occurrence: None)
  Receive Date: 20100830
  Receipt Date: 20100614
  Transmission Date: 20110219
  Serious: Yes (Other)
  Sender: FDA-Public Use
  Company Number: GB-ACCORD-005480

PATIENT
  Age: 47 Year
  Sex: Female

DRUGS (3)
  1. MYCOPHENOLATE MOFETIL [Suspect]
     Indication: LUPUS NEPHRITIS
  2. AZATHIOPRINE [Suspect]
     Indication: LUPUS NEPHRITIS
  3. PREDNISONE [Suspect]
     Indication: LUPUS NEPHRITIS

REACTIONS (3)
  - JC VIRUS INFECTION [None]
  - LEUKOPENIA [None]
  - PROGRESSIVE MULTIFOCAL LEUKOENCEPHALOPATHY [None]
